FAERS Safety Report 20952812 (Version 1)
Quarter: 2022Q2

REPORT INFORMATION
  Report Type: Spontaneous
  Country: JP (occurrence: JP)
  Receive Date: 20220613
  Receipt Date: 20220613
  Transmission Date: 20220721
  Serious: Yes (Other)
  Sender: FDA-Public Use
  Company Number: JP-PFIZER INC-202200804842

PATIENT
  Age: 88 Year
  Sex: Female

DRUGS (1)
  1. PREGABALIN [Suspect]
     Active Substance: PREGABALIN
     Route: 048

REACTIONS (4)
  - Depressed level of consciousness [Unknown]
  - Epilepsy [Unknown]
  - Vision blurred [Unknown]
  - Speech disorder [Unknown]

NARRATIVE: CASE EVENT DATE: 20220606
